FAERS Safety Report 6014976-2 (Version None)
Quarter: 2008Q4

REPORT INFORMATION
  Report Type: 
  Country: None (occurrence: None)
  Receive Date: 20081219
  Receipt Date: 20081210
  Transmission Date: 20090506
  Serious: Yes (Disabling)
  Sender: FDA-Public Use
  Company Number: JP-GILEAD-2008-0019507

PATIENT
  Sex: Male

DRUGS (5)
  1. TRUVADA [Suspect]
     Indication: HIV INFECTION
     Route: 048
     Dates: start: 20070704
  2. KALETRA [Suspect]
     Indication: HIV INFECTION
     Route: 048
     Dates: start: 20070704, end: 20080108
  3. PREZISTA [Suspect]
     Indication: HIV INFECTION
     Route: 048
     Dates: start: 20080109
  4. BIOFERMIN [Concomitant]
     Dates: start: 20070724, end: 20080126
  5. BEZATOL SR [Concomitant]
     Dates: start: 20070807

REACTIONS (1)
  - DIABETES MELLITUS [None]
